FAERS Safety Report 25061083 (Version 1)
Quarter: 2025Q1

REPORT INFORMATION
  Report Type: Spontaneous
  Country: HR (occurrence: HR)
  Receive Date: 20250310
  Receipt Date: 20250310
  Transmission Date: 20250408
  Serious: Yes (Hospitalization, Other)
  Sender: BEIGENE
  Company Number: HR-BEIGENE-BGN-2025-003712

PATIENT
  Age: 84 Year

DRUGS (4)
  1. BRUKINSA [Suspect]
     Active Substance: ZANUBRUTINIB
     Indication: Waldenstrom^s macroglobulinaemia
     Dosage: 160 MILLIGRAM, BID
  2. BRUKINSA [Suspect]
     Active Substance: ZANUBRUTINIB
     Indication: Lymphoplasmacytoid lymphoma/immunocytoma
     Dosage: 160 MILLIGRAM, BID
  3. BRUKINSA [Suspect]
     Active Substance: ZANUBRUTINIB
     Dosage: 80 MILLIGRAM, BID
  4. BRUKINSA [Suspect]
     Active Substance: ZANUBRUTINIB
     Dosage: 80 MILLIGRAM, BID

REACTIONS (5)
  - COVID-19 pneumonia [Recovering/Resolving]
  - Hyperviscosity syndrome [Recovering/Resolving]
  - Respiratory disorder [Recovering/Resolving]
  - Pain of skin [Recovering/Resolving]
  - Epistaxis [Recovering/Resolving]
